FAERS Safety Report 7350339-5 (Version None)
Quarter: 2011Q1

REPORT INFORMATION
  Report Type: 
  Country: None (occurrence: None)
  Receive Date: 20110222
  Receipt Date: 20110115
  Transmission Date: 20110831
  Serious: No
  Sender: FDA-Public Use
  Company Number: 025769

PATIENT
  Sex: Female
  Weight: 58.9 kg

DRUGS (6)
  1. ZOLPIDEM TARTRATE [Concomitant]
  2. LACOSAMIDE [Suspect]
     Indication: CONVULSION
     Dosage: (50 MG QD ORAL), (100 MG QD ORAL)
     Route: 048
     Dates: start: 20110103, end: 20110105
  3. LACOSAMIDE [Suspect]
     Indication: CONVULSION
     Dosage: (50 MG QD ORAL), (100 MG QD ORAL)
     Route: 048
     Dates: start: 20110106, end: 20110116
  4. PROVIGIL [Concomitant]
  5. HYDROCODONE [Concomitant]
  6. KEPPRA [Suspect]
     Indication: CONVULSION
     Dosage: (500 MG QD ORAL)
     Route: 048
     Dates: start: 20101011, end: 20101103

REACTIONS (3)
  - PAIN [None]
  - AMNESIA [None]
  - BLISTER [None]
